FAERS Safety Report 10364490 (Version 1)
Quarter: 2014Q3

REPORT INFORMATION
  Report Type: Spontaneous
  Country: US (occurrence: None)
  Receive Date: 20140804
  Receipt Date: 20140804
  Transmission Date: 20150326
  Serious: Yes (Disabling, Other)
  Sender: FDA-Public Use
  Company Number: None

PATIENT
  Age: 2 Year
  Sex: Male
  Weight: 24.95 kg

DRUGS (1)
  1. MIRALAX [Suspect]
     Active Substance: POLYETHYLENE GLYCOL 3350
     Indication: CONSTIPATION
     Dosage: 2 TABLESPOONS  ONCE DAILY TAKEN BY MOUTH
     Route: 048

REACTIONS (9)
  - Unevaluable event [None]
  - Anger [None]
  - Screaming [None]
  - Diarrhoea [None]
  - Vomiting [None]
  - Asperger^s disorder [None]
  - Crying [None]
  - Anxiety [None]
  - Attention deficit/hyperactivity disorder [None]
